FAERS Safety Report 11736038 (Version 1)
Quarter: 2015Q4

REPORT INFORMATION
  Report Type: Spontaneous
  Country: US (occurrence: US)
  Receive Date: 20151113
  Receipt Date: 20151113
  Transmission Date: 20160304
  Serious: No
  Sender: FDA-Public Use
  Company Number: US-JNJFOC-20151019330

PATIENT
  Age: 54 Year
  Sex: Female

DRUGS (4)
  1. METFORMIN [Concomitant]
     Active Substance: METFORMIN HYDROCHLORIDE
     Indication: TYPE 2 DIABETES MELLITUS
     Route: 065
  2. INVOKANA [Suspect]
     Active Substance: CANAGLIFLOZIN
     Indication: TYPE 2 DIABETES MELLITUS
     Route: 048
     Dates: start: 20151016, end: 20151023
  3. ZESTRIL [Concomitant]
     Active Substance: LISINOPRIL
     Route: 065
  4. LIDODERM [Concomitant]
     Active Substance: LIDOCAINE
     Route: 062

REACTIONS (3)
  - Abnormal behaviour [Unknown]
  - Orthostatic hypotension [Unknown]
  - Dizziness [Unknown]
